FAERS Safety Report 4791036-X (Version None)
Quarter: 2005Q4

REPORT INFORMATION
  Report Type: 
  Country: None (occurrence: None)
  Receive Date: 20051007
  Receipt Date: 20050930
  Transmission Date: 20060501
  Serious: Yes (Hospitalization)
  Sender: FDA-Public Use
  Company Number: US-JNJFOC-20051000772

PATIENT
  Age: 68 Year
  Sex: Male
  Weight: 68.95 kg

DRUGS (1)
  1. DURAGESIC-100 [Suspect]
     Dosage: TWO 100 UG/HR PATCHES
     Route: 062

REACTIONS (6)
  - CONSTIPATION [None]
  - FALL [None]
  - HYPERHIDROSIS [None]
  - INSOMNIA [None]
  - LIVER DISORDER [None]
  - NAUSEA [None]
